FAERS Safety Report 24612788 (Version 1)
Quarter: 2024Q4

REPORT INFORMATION
  Report Type: Spontaneous
  Country: US (occurrence: None)
  Receive Date: 20241112
  Receipt Date: 20241112
  Transmission Date: 20250115
  Serious: Yes (Hospitalization)
  Sender: Public
  Company Number: None

PATIENT
  Age: 79 Year
  Sex: Male

DRUGS (1)
  1. EMPAGLIFLOZIN [Suspect]
     Active Substance: EMPAGLIFLOZIN
     Indication: Cardiac failure congestive
     Dosage: 12.50 MG DILY ORAL
     Route: 048
     Dates: start: 20220509, end: 20240216

REACTIONS (4)
  - Haematuria [None]
  - Urinary tract infection [None]
  - Drug resistance [None]
  - Haemorrhage [None]

NARRATIVE: CASE EVENT DATE: 20240216
